FAERS Safety Report 16966547 (Version 1)
Quarter: 2019Q4

REPORT INFORMATION
  Report Type: Spontaneous
  Country: SK (occurrence: SK)
  Receive Date: 20191028
  Receipt Date: 20191028
  Transmission Date: 20200122
  Serious: Yes (Hospitalization)
  Sender: FDA-Public Use
  Company Number: SK-MYLANLABS-2019M1101071

PATIENT
  Age: 39 Year
  Sex: Female

DRUGS (6)
  1. EUTHYROX [Concomitant]
     Active Substance: LEVOTHYROXINE SODIUM
     Indication: HYPOTHYROIDISM
     Dosage: 75 MICROGRAM (1-0-0, LONG-TERM)
     Route: 048
  2. EFIENT [Suspect]
     Active Substance: PRASUGREL HYDROCHLORIDE
     Indication: MYOCARDIAL ISCHAEMIA
     Dosage: 10 MILLIGRAM (1-0-0)
     Route: 048
     Dates: start: 20181209
  3. TRITACE [Suspect]
     Active Substance: RAMIPRIL
     Indication: MYOCARDIAL ISCHAEMIA
     Dosage: 12.5 MILLIGRAM (1-0-0)
     Route: 048
     Dates: start: 20181209
  4. ATENOBENE [Suspect]
     Active Substance: ATENOLOL
     Indication: MYOCARDIAL ISCHAEMIA
     Dosage: 75 MILLIGRAM, QD (MORNING DOSE 50 MG, EVENING DOSE 25 MG)
     Route: 048
     Dates: start: 20181209
  5. ANOPYRIN [Suspect]
     Active Substance: ASPIRIN
     Indication: MYOCARDIAL ISCHAEMIA
     Dosage: 100 MILLIGRAM (1-0-0)
     Route: 048
     Dates: start: 20181209
  6. ATORVASTATIN [Suspect]
     Active Substance: ATORVASTATIN
     Indication: MYOCARDIAL ISCHAEMIA
     Dosage: 80 MILLIGRAM (0-0-1)
     Route: 048
     Dates: start: 20181209

REACTIONS (2)
  - Rash maculo-papular [Recovered/Resolved]
  - Pruritus [Recovered/Resolved]

NARRATIVE: CASE EVENT DATE: 20181213
